FAERS Safety Report 6188559-8 (Version None)
Quarter: 2009Q2

REPORT INFORMATION
  Report Type: 
  Country: None (occurrence: None)
  Receive Date: 20090513
  Receipt Date: 20090429
  Transmission Date: 20091009
  Serious: Yes (Disabling, Other)
  Sender: FDA-Public Use
  Company Number: US-ROCHE-610010

PATIENT
  Sex: Female
  Weight: 59 kg

DRUGS (8)
  1. PEG-INTERFERON A-2A (RO 25-8310) [Suspect]
     Indication: HEPATITIS C
     Dosage: FORM: PFS
     Route: 058
     Dates: start: 20070214, end: 20070513
  2. RIBAVIRIN [Suspect]
     Indication: HEPATITIS C
     Route: 048
     Dates: start: 20070214, end: 20070513
  3. PREDNISONE [Suspect]
     Indication: DRUG USE FOR UNKNOWN INDICATION
     Route: 065
  4. PREMARIN [Concomitant]
     Indication: HORMONE REPLACEMENT THERAPY
     Route: 048
  5. NEXIUM [Concomitant]
     Route: 048
  6. MAXZIDE [Concomitant]
  7. VITAMIN E [Concomitant]
     Indication: VITAMIN SUPPLEMENTATION
     Route: 048
  8. ASCORBIC ACID [Concomitant]
     Indication: VITAMIN SUPPLEMENTATION
     Route: 048

REACTIONS (9)
  - ADRENAL INSUFFICIENCY [None]
  - ALOPECIA [None]
  - COGAN'S SYNDROME [None]
  - EPISCLERITIS [None]
  - HAEMOGLOBIN DECREASED [None]
  - LYMPHOCYTIC INFILTRATION [None]
  - MUSCULOSKELETAL CHEST PAIN [None]
  - OPTIC NEURITIS [None]
  - RETINAL HAEMORRHAGE [None]
